FAERS Safety Report 8759950 (Version 2)
Quarter: 2012Q4

REPORT INFORMATION
  Report Type: 
  Country: JP (occurrence: JP)
  Receive Date: 20120829
  Receipt Date: 20120904
  Transmission Date: 20130627
  Serious: Yes (Other)
  Sender: FDA-Public Use
  Company Number: JP-GLAXOSMITHKLINE-B0816005A

PATIENT
  Age: 89 Year
  Sex: Female

DRUGS (1)
  1. PAXIL [Suspect]
     Indication: DEPRESSION
     Dosage: 10MG Per day
     Route: 048
     Dates: start: 20120708, end: 20120718

REACTIONS (2)
  - Hallucination [Recovering/Resolving]
  - Depressed level of consciousness [Unknown]
